FAERS Safety Report 14231946 (Version 1)
Quarter: 2017Q4

REPORT INFORMATION
  Report Type: Spontaneous
  Country: US (occurrence: US)
  Receive Date: 20171128
  Receipt Date: 20171128
  Transmission Date: 20180321
  Serious: No
  Sender: FDA-Public Use
  Company Number: US-LEADIANT BIOSCIENCES INC-2016STPI000798

PATIENT
  Age: 23 Year
  Sex: Female

DRUGS (1)
  1. MATULANE [Suspect]
     Active Substance: PROCARBAZINE HYDROCHLORIDE
     Indication: HODGKIN^S DISEASE
     Dosage: 200 MG, QD 14 DAYS ON, 14 DAYS OFF
     Route: 048
     Dates: start: 20160419

REACTIONS (5)
  - Herpes zoster [None]
  - Blister [None]
  - Ulcer [Unknown]
  - Rash [Unknown]
  - Tendon injury [Unknown]

NARRATIVE: CASE EVENT DATE: 201609
